FAERS Safety Report 6183257-9 (Version None)
Quarter: 2009Q2

REPORT INFORMATION
  Report Type: 
  Country: None (occurrence: None)
  Receive Date: 20090507
  Receipt Date: 20090430
  Transmission Date: 20091009
  Serious: Yes (Other)
  Sender: FDA-Public Use
  Company Number: CA-AMGEN-KDL345081

PATIENT
  Sex: Male
  Weight: 80 kg

DRUGS (2)
  1. ARANESP [Suspect]
     Indication: RENAL TRANSPLANT
     Route: 058
  2. HYDROXYUREA [Concomitant]

REACTIONS (1)
  - ANAEMIA [None]
